FAERS Safety Report 7130938-6 (Version None)
Quarter: 2010Q4

REPORT INFORMATION
  Report Type: 
  Country: None (occurrence: None)
  Receive Date: 20101101
  Receipt Date: 20100818
  Transmission Date: 20110411
  Serious: Yes (Other)
  Sender: FDA-Public Use
  Company Number: AMAG201000329

PATIENT
  Age: 77 Year
  Sex: Female
  Weight: 97.7 kg

DRUGS (23)
  1. FERAHEME [Suspect]
     Indication: IRON DEFICIENCY ANAEMIA
     Dosage: 510 MG, SINGLE, INTRAVENOUS ; 510 MG, SINGLE, INTRAVENOUS
     Route: 042
     Dates: start: 20100805, end: 20100805
  2. FERAHEME [Suspect]
     Indication: IRON DEFICIENCY ANAEMIA
     Dosage: 510 MG, SINGLE, INTRAVENOUS ; 510 MG, SINGLE, INTRAVENOUS
     Route: 042
     Dates: start: 20100817, end: 20100817
  3. GLIPIZIDE [Concomitant]
  4. COUMADIN [Concomitant]
  5. LIPITOR [Concomitant]
  6. CORTEF (HYDROCORTISONE CIPIONATE) [Concomitant]
  7. DEMADEX [Concomitant]
  8. FERROUS SULFATE TAB [Concomitant]
  9. MICRO-K (POTASSIUM CHLORIDE) [Concomitant]
  10. CARDIZEM CD [Concomitant]
  11. VITAMIN B12 (HYDROXOCOBALAMIN) [Concomitant]
  12. LANTUS [Concomitant]
  13. GLYCOLAX (MACROGOL) [Concomitant]
  14. NOVOLOG [Concomitant]
  15. XANAX [Concomitant]
  16. TESSALON [Concomitant]
  17. EPOGEN [Concomitant]
  18. PRILOSEC (OMEPRAZOLE) [Concomitant]
  19. ADVAIR DISKUS 100/50 [Concomitant]
  20. NEURONTIN [Concomitant]
  21. OMEGA-3 FATTY ACIDS (OMEGA-3 FATTY ACIDS) [Concomitant]
  22. NITROSTAT [Concomitant]
  23. GLUCOTROL [Concomitant]

REACTIONS (7)
  - DYSPNOEA [None]
  - FLUSHING [None]
  - HYPERSENSITIVITY [None]
  - NAUSEA [None]
  - SKIN BURNING SENSATION [None]
  - VOMITING [None]
  - WHEEZING [None]
